FAERS Safety Report 13427609 (Version 1)
Quarter: 2017Q2

REPORT INFORMATION
  Report Type: Spontaneous
  Country: US (occurrence: US)
  Receive Date: 20170411
  Receipt Date: 20170411
  Transmission Date: 20170830
  Serious: No
  Sender: FDA-Public Use
  Company Number: US-009507513-1703USA012477

PATIENT
  Age: 26 Year
  Sex: Female
  Weight: 95.24 kg

DRUGS (1)
  1. NUVARING [Suspect]
     Active Substance: ETHINYL ESTRADIOL\ETONOGESTREL
     Indication: CONTRACEPTION
     Dosage: CONTINUOUS USE
     Route: 067
     Dates: start: 2012

REACTIONS (2)
  - Inappropriate schedule of drug administration [Unknown]
  - Menorrhagia [Unknown]

NARRATIVE: CASE EVENT DATE: 2012
